FAERS Safety Report 5166975-0 (Version None)
Quarter: 2006Q4

REPORT INFORMATION
  Report Type: 
  Country: None (occurrence: None)
  Receive Date: 20061129
  Receipt Date: 20061116
  Transmission Date: 20070319
  Serious: Yes (Death)
  Sender: FDA-Public Use
  Company Number: 2006142888

PATIENT
  Sex: Male

DRUGS (2)
  1. ZELDOX (CAPSULES) (ZIPRASIDONE) [Suspect]
     Dosage: ORAL
     Route: 048
  2. SEROQUEL [Concomitant]

REACTIONS (1)
  - DEATH [None]
